FAERS Safety Report 7927164-7 (Version None)
Quarter: 2011Q4

REPORT INFORMATION
  Report Type: 
  Country: None (occurrence: None)
  Receive Date: 20111116
  Receipt Date: 20111108
  Transmission Date: 20120403
  Serious: Yes (Other)
  Sender: FDA-Public Use
  Company Number: TIR-00747

PATIENT
  Age: 28 Year
  Sex: Male

DRUGS (2)
  1. METFORMIN HCL [Suspect]
     Dosage: 500 MG ORAL ; 2.55 GRAM ORAL
     Route: 048
  2. LEVOTHYROXINE SODIUM [Suspect]
     Dosage: 500 UG ORAL ; 300 UG ORAL
     Route: 048

REACTIONS (5)
  - UNEVALUABLE EVENT [None]
  - POTENTIATING DRUG INTERACTION [None]
  - GENERALISED RESISTANCE TO THYROID HORMONE [None]
  - TYPE 2 DIABETES MELLITUS [None]
  - HYPERTHYROIDISM [None]
